FAERS Safety Report 19413600 (Version 3)
Quarter: 2021Q3

REPORT INFORMATION
  Report Type: Spontaneous
  Country: FR (occurrence: FR)
  Receive Date: 20210615
  Receipt Date: 20210901
  Transmission Date: 20211014
  Serious: Yes (Other)
  Sender: FDA-Public Use
  Company Number: FR-SHILPA MEDICARE LIMITED-SML-FR-2021-00776

PATIENT
  Age: 51 Year
  Sex: Female

DRUGS (7)
  1. CAPECITABINA, UNKNOWN [Suspect]
     Active Substance: CAPECITABINE
     Route: 048
     Dates: start: 20210303
  2. TUCATINIB [Suspect]
     Active Substance: TUCATINIB
     Dosage: 400 UNK
     Route: 048
     Dates: start: 20210303
  3. TRASTUZUMAB. [Suspect]
     Active Substance: TRASTUZUMAB
     Indication: HER2 POSITIVE BREAST CANCER
     Route: 058
     Dates: start: 20210120, end: 20210127
  4. IRBESARTAN. [Concomitant]
     Active Substance: IRBESARTAN
     Indication: PRODUCT USED FOR UNKNOWN INDICATION
     Dosage: 1/2 TABLET
     Route: 048
  5. TYVERB [Concomitant]
     Active Substance: LAPATINIB
     Indication: PRODUCT USED FOR UNKNOWN INDICATION
     Dosage: 50 MG, 5 CAPSULES/DAY
     Route: 048
  6. TUCATINIB [Suspect]
     Active Substance: TUCATINIB
     Indication: HER2 POSITIVE BREAST CANCER
     Dosage: 600 MG, QD
     Route: 048
     Dates: start: 20210120, end: 20210127
  7. CAPECITABINA, UNKNOWN [Suspect]
     Active Substance: CAPECITABINE
     Indication: HER2 POSITIVE BREAST CANCER
     Route: 048
     Dates: start: 20210120, end: 20210205

REACTIONS (2)
  - Eczema [Recovered/Resolved]
  - Botryomycosis [Recovered/Resolved]

NARRATIVE: CASE EVENT DATE: 20210127
